FAERS Safety Report 24307135 (Version 2)
Quarter: 2024Q3

REPORT INFORMATION
  Report Type: Spontaneous
  Country: HR (occurrence: HR)
  Receive Date: 20240911
  Receipt Date: 20240913
  Transmission Date: 20241016
  Serious: No
  Sender: NOVARTIS
  Company Number: HR-002147023-NVSC2024HR181582

PATIENT
  Sex: Female

DRUGS (1)
  1. KISQALI [Suspect]
     Active Substance: RIBOCICLIB
     Indication: Product used for unknown indication
     Dosage: UNK
     Route: 065

REACTIONS (1)
  - Disease progression [Unknown]
